FAERS Safety Report 7710072-4 (Version None)
Quarter: 2011Q3

REPORT INFORMATION
  Report Type: 
  Country: None (occurrence: None)
  Receive Date: 20110825
  Receipt Date: 20110822
  Transmission Date: 20111222
  Serious: Yes (Death, Hospitalization, Other)
  Sender: FDA-Public Use
  Company Number: PHHY2011BR75285

PATIENT
  Sex: Female

DRUGS (1)
  1. FORMOTEROL FUMARATE [Suspect]
     Indication: RESPIRATORY FAILURE
     Dosage: UNK UKN, UNK

REACTIONS (2)
  - RESPIRATORY FAILURE [None]
  - HYPERTENSION [None]
